FAERS Safety Report 8543564-9 (Version None)
Quarter: 2012Q3

REPORT INFORMATION
  Report Type: 
  Country: None (occurrence: None)
  Receive Date: 20120727
  Receipt Date: 20120716
  Transmission Date: 20120928
  Serious: Yes (Hospitalization, Other)
  Sender: FDA-Public Use
  Company Number: US-BAYER-2012-019452

PATIENT
  Age: 37 Year
  Sex: Female
  Weight: 78.92 kg

DRUGS (15)
  1. VICODIN [Concomitant]
     Indication: JOINT INJURY
     Dosage: UNK
     Dates: start: 20040421
  2. VICODIN [Concomitant]
     Dosage: UNK
     Dates: start: 20041128
  3. HYDREA [Concomitant]
     Indication: ABDOMINAL PAIN
     Dosage: UNK
     Dates: start: 20040101
  4. HYZAAR [Concomitant]
  5. YASMIN [Suspect]
     Indication: PRODUCT USED FOR UNKNOWN INDICATION
     Dosage: UNK
     Dates: start: 20040501, end: 20050301
  6. YAZ [Suspect]
     Indication: PRODUCT USED FOR UNKNOWN INDICATION
     Dosage: UNK
     Dates: start: 20040501, end: 20050301
  7. MOTRIN [Concomitant]
  8. ALEVE [Concomitant]
     Indication: ABDOMINAL PAIN
     Dosage: UNK
     Dates: start: 20050101
  9. NORVASC [Concomitant]
  10. TYLENOL [Concomitant]
     Indication: ABDOMINAL PAIN
     Dosage: UNK
     Dates: start: 20050101
  11. LASIX [Concomitant]
  12. SKELAXIN [Concomitant]
  13. ASPIRIN [Concomitant]
     Indication: TRANSIENT ISCHAEMIC ATTACK
  14. WELLBUTRIN [Concomitant]
  15. POTASSIUM CHLORIDE [Concomitant]

REACTIONS (9)
  - PORTAL VEIN THROMBOSIS [None]
  - BUDD-CHIARI SYNDROME [None]
  - CHOLELITHIASIS [None]
  - INJURY [None]
  - CEREBROVASCULAR ACCIDENT [None]
  - TRANSIENT ISCHAEMIC ATTACK [None]
  - HEPATIC VEIN THROMBOSIS [None]
  - SPLENIC VEIN THROMBOSIS [None]
  - PAIN [None]
